FAERS Safety Report 10547326 (Version 6)
Quarter: 2015Q4

REPORT INFORMATION
  Report Type: Spontaneous
  Country: US (occurrence: US)
  Receive Date: 20141028
  Receipt Date: 20151014
  Transmission Date: 20160304
  Serious: Yes (Hospitalization, Other)
  Sender: FDA-Public Use
  Company Number: US-PFIZER INC-2014290720

PATIENT
  Age: 71 Year
  Sex: Male
  Weight: 100.68 kg

DRUGS (59)
  1. AMLODIPINE BESYLATE. [Concomitant]
     Active Substance: AMLODIPINE BESYLATE
     Dosage: 5 MG, DAILY  (1 DF)
     Route: 048
     Dates: start: 201406, end: 20150128
  2. ANUSOL-HC [Concomitant]
     Dosage: UNK, AS NEEDED (2.5 % CREAM TAKE 1 TOPICAL APPLICATION TOPICAL QID PRN)
     Dates: start: 201406
  3. ATIVAN [Concomitant]
     Active Substance: LORAZEPAM
     Indication: NAUSEA
     Dosage: 1 MG, AS NEEDED (1DF Q4H)
     Route: 048
     Dates: start: 201406
  4. ZOLOFT [Concomitant]
     Active Substance: SERTRALINE HYDROCHLORIDE
     Dosage: 50 MG, DAILY
     Route: 048
  5. ZOLOFT [Concomitant]
     Active Substance: SERTRALINE HYDROCHLORIDE
     Dosage: UNK
     Dates: start: 201406
  6. IMODIUM [Concomitant]
     Active Substance: LOPERAMIDE HYDROCHLORIDE
     Dosage: UNK (2-125MG TABLET(S); TAKE 1 PO AS DIRECTED)
  7. METRONIDAZOLE. [Concomitant]
     Active Substance: METRONIDAZOLE
     Dosage: 500 MG, 3X/DAY
     Route: 048
     Dates: start: 20141022
  8. METOPROLOL TARTRATE. [Concomitant]
     Active Substance: METOPROLOL TARTRATE
     Dosage: 50 MG, 2X/DAY
     Route: 048
  9. MUCINEX DM [Concomitant]
     Active Substance: DEXTROMETHORPHAN HYDROBROMIDE\GUAIFENESIN
     Dosage: UNK (GUAIFENESIN/DEXTROMETHORPHAN)
     Route: 048
  10. FERRALET 90 [Concomitant]
     Active Substance: ASCORBIC ACID\CYANOCOBALAMIN\DOCUSATE SODIUM\FOLIC ACID\IRON
     Dosage: 1 DF, DAILY (90-1-50 MG TABLET(S) TAKE 1 PO DAILY)
     Route: 048
     Dates: start: 201409, end: 201409
  11. HYDROCHLOROTHIAZIDE. [Concomitant]
     Active Substance: HYDROCHLOROTHIAZIDE
     Dosage: 25 MG, DAILY (1 DF)
     Route: 048
     Dates: start: 201406, end: 20150128
  12. METFORMIN HCL [Concomitant]
     Active Substance: METFORMIN HYDROCHLORIDE
     Dosage: 1000 MG, 2X/DAY (1 DF TAKE WITH MEALS)
     Route: 048
     Dates: start: 201405
  13. MIRALAX [Concomitant]
     Active Substance: POLYETHYLENE GLYCOL 3350
     Dosage: 17 G, DAILY ( AS DIRECTED)
     Route: 048
     Dates: start: 201409, end: 20140924
  14. XARELTO [Concomitant]
     Active Substance: RIVAROXABAN
     Dosage: 20 MG, DAILY
     Route: 048
     Dates: start: 201406
  15. ZOLOFT [Concomitant]
     Active Substance: SERTRALINE HYDROCHLORIDE
     Dosage: 25 MG, DAILY
     Route: 048
  16. ZOLOFT [Concomitant]
     Active Substance: SERTRALINE HYDROCHLORIDE
     Dosage: 25 MG, DAILY
     Route: 048
     Dates: start: 20140512
  17. IMODIUM [Concomitant]
     Active Substance: LOPERAMIDE HYDROCHLORIDE
     Dosage: UNK, 1X/DAY
     Route: 048
     Dates: start: 201409, end: 20150128
  18. CIPROFLOXACIN HCL [Concomitant]
     Active Substance: CIPROFLOXACIN HYDROCHLORIDE
     Dosage: 1 DF, 4X/DAY (0.3 % DROPS TAKE ^I DROP(S) OU Q4H FOR EYE INFECTION X 5 DAYS)
     Dates: start: 201409, end: 201410
  19. BENADRYL ALLERGY [Concomitant]
     Active Substance: DIPHENHYDRAMINE HYDROCHLORIDE
     Dosage: 25 MG, UNK (TAKE 1 PO AS DIRECTED)
     Route: 048
  20. SUTENT [Suspect]
     Active Substance: SUNITINIB MALATE
     Indication: RENAL CANCER STAGE IV
     Dosage: 37.5 MG DAILY FOR 14 DAYS/ THEN 7 DAYS OFF)
     Route: 048
     Dates: start: 20140611, end: 201410
  21. ACYCLOVIR. [Concomitant]
     Active Substance: ACYCLOVIR
     Dosage: 800 MG, (TAKE 1, 5 TIMES DAILY.)
     Route: 048
  22. ATORVASTATIN CALCIUM. [Concomitant]
     Active Substance: ATORVASTATIN CALCIUM
     Dosage: 20 MG, DAILY
     Route: 048
     Dates: start: 20141002
  23. COLACE [Concomitant]
     Active Substance: DOCUSATE SODIUM
     Dosage: 100 MG, AS NEEDED (1DF BID PRN)
     Route: 048
     Dates: start: 201409
  24. LEVOTHYROXINE SODIUM. [Concomitant]
     Active Substance: LEVOTHYROXINE SODIUM
     Dosage: 0.125 MG, DAILY (1 DF)
     Route: 048
     Dates: start: 201401
  25. LEVOTHYROXINE SODIUM. [Concomitant]
     Active Substance: LEVOTHYROXINE SODIUM
     Dosage: 137 ?G, DAILY (TAKE 1 PO DAILY)
  26. ZYRTEC [Concomitant]
     Active Substance: CETIRIZINE HYDROCHLORIDE
     Dosage: 10 MG, DAILY
     Dates: start: 201406
  27. METRONIDAZOLE. [Concomitant]
     Active Substance: METRONIDAZOLE
     Dosage: 500 MG, 3X/DAY
  28. CLARITIN-D 12 HOUR [Concomitant]
     Active Substance: LORATADINE\PSEUDOEPHEDRINE SULFATE
     Dosage: UNK (CLARITIN-D 24 HOUR, PO SOLID SR (LORATADINE/PSEUDOEPHEDRINE)
  29. GLIPIZIDE. [Concomitant]
     Active Substance: GLIPIZIDE
     Dosage: 2.5 MG, DAILY (EXTENDED RELEASE 24 HR TAKE 1 TABLET(S) PO DAILY)
     Route: 048
  30. HYDRALAZINE HCL [Concomitant]
     Active Substance: HYDRALAZINE HYDROCHLORIDE
     Dosage: 10 MG, DAILY (1 DF)
     Route: 048
     Dates: start: 201407, end: 20150128
  31. IRON [Concomitant]
     Active Substance: IRON
     Dosage: 1 DF, 3X/DAY (325(65))
  32. LOSARTAN POTASSIUM. [Concomitant]
     Active Substance: LOSARTAN POTASSIUM
     Dosage: 100 MG, DAILY (1DF)
     Route: 048
     Dates: start: 201407, end: 20150128
  33. PROCHLORPERAZINE MALEATE. [Concomitant]
     Active Substance: PROCHLORPERAZINE MALEATE
     Indication: NAUSEA
     Dosage: 10 MG, AS NEEDED (1 DF Q4-6H PRN)
     Route: 048
     Dates: start: 201406
  34. TEMAZEPAM. [Concomitant]
     Active Substance: TEMAZEPAM
     Dosage: 15 MG, DAILY (AT BEDTIME)
     Route: 048
     Dates: start: 201406, end: 201412
  35. OMEPRAZOLE. [Concomitant]
     Active Substance: OMEPRAZOLE
     Indication: GASTROOESOPHAGEAL REFLUX DISEASE
     Dosage: 20 MG, DAILY
     Route: 048
     Dates: start: 20130103
  36. SUTENT [Suspect]
     Active Substance: SUNITINIB MALATE
     Dosage: 25 MG, CYCLIC
     Dates: start: 201410
  37. SUTENT [Suspect]
     Active Substance: SUNITINIB MALATE
     Dosage: (12.5 MG 3 TIMES A DAY) FOR 14 ON AND 7OFF37.5 MG, CYCLIC
     Route: 048
     Dates: start: 20150304, end: 201506
  38. FERREX [Concomitant]
     Dosage: 1 DF, DAILY (150-25-1 CAPSULE(S) TAKE 1 PO DAILY)
     Route: 048
     Dates: start: 201406
  39. FERREX [Concomitant]
     Dosage: 1 DF, DAILY (150-25-1 CAPSULE)
     Route: 048
     Dates: start: 20140909
  40. FLONASE [Concomitant]
     Active Substance: FLUTICASONE PROPIONATE
     Dosage: 50 ?G, UNK (TAKE 1 INHALATION ROUTE DAILY)
     Dates: start: 20140625
  41. PROCHLORPERAZINE MALEATE. [Concomitant]
     Active Substance: PROCHLORPERAZINE MALEATE
     Dosage: 10 MG, AS NEEDED (TAKE 1 PO Q4-6H PRN)
     Dates: start: 20130521
  42. FERROUS SULFATE [Concomitant]
     Active Substance: FERROUS SULFATE\FERROUS SULFATE, DRIED
     Dosage: 65 MG, 3X/DAY (OUTSIDE RX: 325(65) MG TABTET(S) TAKE 1 PO TID)
     Route: 048
  43. SUTENT [Suspect]
     Active Substance: SUNITINIB MALATE
     Dosage: 25 MG, DAILY (X 28 DAYS, THEN 2 WEEKS OFF)
     Route: 048
     Dates: start: 201506
  44. FLONASE [Concomitant]
     Active Substance: FLUTICASONE PROPIONATE
     Dosage: UNK (50 MCG SPRAY, SUSPENSION TAKE 1 INHALATION ROUTE DAILY)
     Dates: start: 201406
  45. ONDANSETRON HYDROCHLORIDE. [Concomitant]
     Active Substance: ONDANSETRON HYDROCHLORIDE
     Indication: NAUSEA
     Dosage: 8 MG, AS NEEDED (1 DF Q8H PRN)
     Route: 048
     Dates: start: 201409
  46. ONDANSETRON HYDROCHLORIDE. [Concomitant]
     Active Substance: ONDANSETRON HYDROCHLORIDE
     Dosage: 8 MG, AS NEEDED (TAKE 1 PO Q8H PRN)
     Route: 048
     Dates: start: 20140530
  47. LORAZEPAM. [Concomitant]
     Active Substance: LORAZEPAM
     Indication: NAUSEA
     Dosage: 1 MG, AS NEEDED (1 MG TABLET(S), TAKE 1 TABLET BY MOUTH EVERY 4 HOURS AS NEEDED)
     Route: 048
     Dates: start: 201407
  48. SUTENT [Suspect]
     Active Substance: SUNITINIB MALATE
     Dosage: 37.5 MG (12.5 MG 3 TIMES A DAY) FOR 14 ON AND 7OFF
     Route: 048
     Dates: end: 20150128
  49. HYDROCODONE BITARTRATE AND ACETAMINOPHEN [Concomitant]
     Active Substance: ACETAMINOPHEN\HYDROCODONE BITARTRATE
     Dosage: UNK (10-325MG; TABLET TAKE 1 PO Q4H PRN)
     Route: 048
     Dates: start: 20140619
  50. IRON [Concomitant]
     Active Substance: IRON
     Dosage: 1 DF, 1X/DAY (325(65) MG TABLET(S) TAKE 1 PO QHS)
     Route: 048
     Dates: start: 201406
  51. TRAZODONE HYDROCHLORIDE. [Concomitant]
     Active Substance: TRAZODONE HYDROCHLORIDE
     Dosage: 50 MG, AS NEEDED (TAKE 1 TO 2 TABLETS BY MOUTH AT BEDTIME)
     Route: 048
     Dates: start: 20141119
  52. ATORVASTATIN CALCIUM. [Concomitant]
     Active Substance: ATORVASTATIN CALCIUM
     Dosage: 40 MG, DAILY  (1 DF)
     Route: 048
     Dates: start: 201406
  53. COLACE [Concomitant]
     Active Substance: DOCUSATE SODIUM
     Dosage: 100 MG, 2X/DAY (DOC-Q-LACE)
     Route: 048
     Dates: start: 20141022
  54. FLAGYL [Concomitant]
     Active Substance: METRONIDAZOLE\METRONIDAZOLE HYDROCHLORIDE
     Dosage: 500 MG, 3X/DAY (1 DF)
     Route: 048
     Dates: start: 201501, end: 201502
  55. HYDROCODONE BITARTRATE AND ACETAMINOPHEN [Concomitant]
     Active Substance: ACETAMINOPHEN\HYDROCODONE BITARTRATE
     Indication: PAIN
     Dosage: 1 DF, AS NEEDED (10 MG-325MG TABLET(S) TAKE 1)
     Route: 048
     Dates: start: 201405
  56. PROBIOTICS [Concomitant]
     Active Substance: PROBIOTICS NOS
     Dosage: 1 DF, DAILY (TAKE 1 PO DAILY)
     Route: 048
     Dates: start: 201406
  57. PROBIOTICS [Concomitant]
     Active Substance: PROBIOTICS NOS
     Dosage: UNK, DAILY (RX: CAPSULE(S) TAKE 1 PO DAILY)
     Route: 048
  58. LORAZEPAM. [Concomitant]
     Active Substance: LORAZEPAM
     Dosage: 1 MG, AS NEEDED (TAKE 1 TABLET BY MOUTH EVERY 4 HOURS AS NEEDED)
     Route: 048
     Dates: start: 20140423
  59. TRAZODONE HYDROCHLORIDE. [Concomitant]
     Active Substance: TRAZODONE HYDROCHLORIDE
     Indication: SLEEP DISORDER
     Dosage: 50 MG, UNK (1-2 AT HS FOR SLEEP, INSTRUCTIONS: 1-2 AT HS FOR SLEEP)
     Route: 048
     Dates: start: 201412

REACTIONS (32)
  - Cholecystitis [Recovered/Resolved]
  - Dry skin [Unknown]
  - Cholelithiasis [Recovered/Resolved]
  - Malaise [Recovered/Resolved]
  - Plasma cell myeloma [Unknown]
  - Oedema peripheral [Recovered/Resolved]
  - Depression [Unknown]
  - Nausea [Recovered/Resolved]
  - Clostridium difficile infection [Recovered/Resolved]
  - Pancytopenia [Unknown]
  - Dyspepsia [Unknown]
  - Disease progression [Unknown]
  - Hepatic enzyme increased [Recovered/Resolved]
  - Venous thrombosis [Unknown]
  - Inflammation [Unknown]
  - Second primary malignancy [Unknown]
  - Haemorrhoidal haemorrhage [Recovered/Resolved]
  - Skin irritation [Recovered/Resolved]
  - Fatigue [Not Recovered/Not Resolved]
  - Blood glucose increased [Recovered/Resolved]
  - Iron deficiency anaemia [Unknown]
  - Gastrointestinal haemorrhage [Unknown]
  - Hepatic cirrhosis [Unknown]
  - Diarrhoea [Recovered/Resolved]
  - Asthenia [Unknown]
  - Blood pressure increased [Recovered/Resolved]
  - Blood albumin decreased [Unknown]
  - Renal cell carcinoma [Unknown]
  - Tremor [Recovered/Resolved]
  - Pancreatic disorder [Unknown]
  - Somnolence [Unknown]
  - Gastritis [Recovering/Resolving]

NARRATIVE: CASE EVENT DATE: 2014
